FAERS Safety Report 5629763-4 (Version None)
Quarter: 2008Q1

REPORT INFORMATION
  Report Type: 
  Country: None (occurrence: None)
  Receive Date: 20080214
  Receipt Date: 20071119
  Transmission Date: 20080703
  Serious: Yes (Other)
  Sender: FDA-Public Use
  Company Number: 000#8#2007-00359

PATIENT
  Age: 60 Year
  Sex: Male
  Weight: 74 kg

DRUGS (7)
  1. GLYCERYL TRINITRATE (DOSE UNKNOWN),  (GLYCERYL TRINITRATE) [Suspect]
     Indication: HYPERTENSION
  2. TELMISARTAN               (TELMISARTAN) [Suspect]
     Indication: HYPERTENSION
  3. BACLOFEN [Concomitant]
  4. CIPROFLOXACIN [Concomitant]
  5. OXYGEN      (OXYGEN) [Concomitant]
  6. INSULIN           (INSULIN) [Concomitant]
  7. AMOXYCILLIN + CLAVULANIC ACID (AMOXICILLIN, CLAVULANATE POTASSIUM) [Concomitant]

REACTIONS (9)
  - COMA [None]
  - HAEMODIALYSIS [None]
  - HYPOTENSION [None]
  - HYPOTONIA [None]
  - MUSCLE SPASMS [None]
  - OVERDOSE [None]
  - RENAL FAILURE ACUTE [None]
  - RESPIRATORY FAILURE [None]
  - SEPSIS [None]
